FAERS Safety Report 23515499 (Version 1)
Quarter: 2024Q1

REPORT INFORMATION
  Report Type: Spontaneous
  Country: US (occurrence: US)
  Receive Date: 20240213
  Receipt Date: 20240213
  Transmission Date: 20240410
  Serious: Yes (Other)
  Sender: FDA-Public Use
  Company Number: US-NOVOPROD-1165838

PATIENT
  Age: 67 Year
  Sex: Female

DRUGS (1)
  1. OZEMPIC [Suspect]
     Active Substance: SEMAGLUTIDE
     Indication: Weight decreased
     Dosage: 1 MG, QW
     Route: 058
     Dates: start: 20240109, end: 20240109

REACTIONS (12)
  - Complication associated with device [Not Recovered/Not Resolved]
  - Heart rate abnormal [Unknown]
  - Chills [Recovered/Resolved]
  - Tremor [Unknown]
  - Gait inability [Unknown]
  - Bowel movement irregularity [Not Recovered/Not Resolved]
  - Dehydration [Unknown]
  - Asthenia [Recovered/Resolved]
  - Abdominal pain upper [Recovered/Resolved]
  - Vomiting [Recovered/Resolved]
  - Off label use [Recovered/Resolved]
  - Off label use [Recovered/Resolved]

NARRATIVE: CASE EVENT DATE: 20240101
